FAERS Safety Report 8417322-X (Version None)
Quarter: 2012Q2

REPORT INFORMATION
  Report Type: 
  Country: None (occurrence: None)
  Receive Date: 20120606
  Receipt Date: 20120529
  Transmission Date: 20120825
  Serious: Yes (Other)
  Sender: FDA-Public Use
  Company Number: US-US-EMD SERONO, INC.-7136634

PATIENT
  Sex: Male
  Weight: 68 kg

DRUGS (2)
  1. EGRIFTA [Suspect]
     Indication: LIPODYSTROPHY ACQUIRED
     Route: 058
     Dates: start: 20110801
  2. UNSPECIFIED MEDICATIONS [Concomitant]
     Indication: HIV TEST POSITIVE

REACTIONS (1)
  - SQUAMOUS CELL CARCINOMA [None]
